FAERS Safety Report 23872970 (Version 2)
Quarter: 2024Q2

REPORT INFORMATION
  Report Type: Spontaneous
  Country: RU (occurrence: RU)
  Receive Date: 20240520
  Receipt Date: 20240628
  Transmission Date: 20240715
  Serious: Yes (Hospitalization, Other)
  Sender: FDA-Public Use
  Company Number: RU-Merck Healthcare KGaA-2024026062

PATIENT
  Age: 33 Year
  Sex: Female

DRUGS (7)
  1. MAVENCLAD [Suspect]
     Active Substance: CLADRIBINE
     Indication: Multiple sclerosis
     Dosage: YEAR ONE MONTH ONE THERAPY
     Dates: start: 202208
  2. MAVENCLAD [Suspect]
     Active Substance: CLADRIBINE
     Dosage: YEAR ONE MONTH TWO THERAPY
  3. MAVENCLAD [Suspect]
     Active Substance: CLADRIBINE
     Dosage: YEAR TWO MONTH TWO THERAPY
  4. MAVENCLAD [Suspect]
     Active Substance: CLADRIBINE
     Dosage: YEAR TWO MONTH ONE THERAPY
  5. INOSINE\NIACINAMIDE\RIBOFLAVIN\SUCCINIC ACID [Concomitant]
     Active Substance: INOSINE\NIACINAMIDE\RIBOFLAVIN\SUCCINIC ACID
     Indication: Product used for unknown indication
     Dosage: 60 DROPS IN 1 MINUTE
     Route: 041
     Dates: start: 20231024, end: 20231102
  6. BERLITHION [Concomitant]
     Indication: Product used for unknown indication
     Dosage: 40 DROPS IN 1 MINUTE
     Route: 041
  7. BLOOD, BOVINE [Concomitant]
     Active Substance: BLOOD, BOVINE
     Indication: Product used for unknown indication
     Route: 040

REACTIONS (11)
  - Autoimmune thyroiditis [Unknown]
  - Chronic gastritis [Recovering/Resolving]
  - Biliary dyskinesia [Recovering/Resolving]
  - Multiple sclerosis [Recovering/Resolving]
  - White blood cell count decreased [Unknown]
  - Lymphocyte count decreased [Not Recovered/Not Resolved]
  - Pharyngitis [Unknown]
  - Rhinitis [Unknown]
  - Nasal septum deviation [Unknown]
  - Neck pain [Unknown]
  - Asthenia [Not Recovered/Not Resolved]

NARRATIVE: CASE EVENT DATE: 20231226
